FAERS Safety Report 11166185 (Version 1)
Quarter: 2015Q2

REPORT INFORMATION
  Report Type: Report from Study
  Country: FR (occurrence: FR)
  Receive Date: 20150605
  Receipt Date: 20150605
  Transmission Date: 20150821
  Serious: Yes (Death, Hospitalization)
  Sender: FDA-Public Use
  Company Number: FR-ROCHE-1164933

PATIENT
  Age: 62 Year
  Sex: Male

DRUGS (8)
  1. HYDROCORTISONE HEMISUCCINATE [Concomitant]
     Active Substance: HYDROCORTISONE HEMISUCCINATE
     Indication: PREMEDICATION
     Route: 065
  2. PARACETAMOL [Concomitant]
     Active Substance: ACETAMINOPHEN
     Indication: PREMEDICATION
  3. CORTANCYL [Concomitant]
     Active Substance: PREDNISONE
  4. RITUXIMAB [Suspect]
     Active Substance: RITUXIMAB
     Indication: RHEUMATOID ARTHRITIS
     Route: 042
     Dates: start: 20060323
  5. RITUXIMAB [Suspect]
     Active Substance: RITUXIMAB
     Route: 042
     Dates: start: 20071207
  6. RITUXIMAB [Suspect]
     Active Substance: RITUXIMAB
     Route: 042
     Dates: start: 20060615
  7. RITUXIMAB [Suspect]
     Active Substance: RITUXIMAB
     Route: 042
     Dates: start: 20061103
  8. RITUXIMAB [Suspect]
     Active Substance: RITUXIMAB
     Route: 042
     Dates: start: 20061116

REACTIONS (7)
  - Bronchopneumonia [Unknown]
  - Neuropathy peripheral [Not Recovered/Not Resolved]
  - Infusion related reaction [Recovered/Resolved]
  - Oedema [Not Recovered/Not Resolved]
  - Cardiac failure [Fatal]
  - Chronic kidney disease [Recovered/Resolved]
  - Dermo-hypodermitis [Not Recovered/Not Resolved]

NARRATIVE: CASE EVENT DATE: 20060619
